FAERS Safety Report 22089896 (Version 1)
Quarter: 2023Q1

REPORT INFORMATION
  Report Type: Report from Study
  Country: AU (occurrence: AU)
  Receive Date: 20230313
  Receipt Date: 20230313
  Transmission Date: 20230418
  Serious: Yes (Other)
  Sender: FDA-Public Use
  Company Number: AU-JNJFOC-20230330978

PATIENT
  Sex: Female

DRUGS (1)
  1. REMICADE [Suspect]
     Active Substance: INFLIXIMAB
     Indication: Product used for unknown indication
     Route: 041

REACTIONS (4)
  - Dyspnoea [Not Recovered/Not Resolved]
  - Hypertension [Not Recovered/Not Resolved]
  - Abdominal pain [Unknown]
  - COVID-19 [Unknown]

NARRATIVE: CASE EVENT DATE: 20221201
